FAERS Safety Report 6056752-0 (Version None)
Quarter: 2009Q1

REPORT INFORMATION
  Report Type: 
  Country: None (occurrence: None)
  Receive Date: 20090129
  Receipt Date: 20090123
  Transmission Date: 20090719
  Serious: Yes (Hospitalization, Other)
  Sender: FDA-Public Use
  Company Number: US-BIOGENIDEC-2009BI002636

PATIENT
  Sex: Female

DRUGS (3)
  1. AVONEX [Suspect]
     Indication: MULTIPLE SCLEROSIS
     Route: 030
  2. COPAXONE [Concomitant]
     Indication: MULTIPLE SCLEROSIS
  3. BETASERON [Concomitant]
     Indication: MULTIPLE SCLEROSIS

REACTIONS (3)
  - APHASIA [None]
  - MYOCARDIAL INFARCTION [None]
  - PARAESTHESIA [None]
